FAERS Safety Report 12113230 (Version 4)
Quarter: 2016Q3

REPORT INFORMATION
  Report Type: Spontaneous
  Country: US (occurrence: US)
  Receive Date: 20160225
  Receipt Date: 20160714
  Transmission Date: 20161109
  Serious: Yes (Other)
  Sender: FDA-Public Use
  Company Number: US-ROCHE-1716640

PATIENT
  Sex: Male

DRUGS (9)
  1. OMEPRAZOLE/SODIUM BICARBONATE [Concomitant]
     Active Substance: OMEPRAZOLE\SODIUM BICARBONATE
  2. FLUOCINOLONE ACETONIDE. [Concomitant]
     Active Substance: FLUOCINOLONE ACETONIDE
  3. ALBUTEROL SULFATE. [Concomitant]
     Active Substance: ALBUTEROL SULFATE
  4. ASPIRIN. [Concomitant]
     Active Substance: ASPIRIN
  5. VITAMIN E COMPLEX [Concomitant]
  6. ESBRIET [Suspect]
     Active Substance: PIRFENIDONE
     Indication: IDIOPATHIC PULMONARY FIBROSIS
     Dosage: MAINTAINANCE DOSE
     Route: 048
     Dates: start: 20160216
  7. ASPERCREME (UNITED STATES) [Concomitant]
  8. OMEGA 3 [Concomitant]
     Active Substance: OMEGA-3 FATTY ACIDS
  9. AZELASTINE HYDROCHLORIDE. [Concomitant]
     Active Substance: AZELASTINE HYDROCHLORIDE

REACTIONS (5)
  - Rash [Unknown]
  - Fatigue [Not Recovered/Not Resolved]
  - Abdominal pain [Unknown]
  - Diverticulitis [Not Recovered/Not Resolved]
  - Gastric disorder [Not Recovered/Not Resolved]
